FAERS Safety Report 4492803-2 (Version None)
Quarter: 2004Q4

REPORT INFORMATION
  Report Type: 
  Country: None (occurrence: None)
  Receive Date: 20041029
  Receipt Date: 20041020
  Transmission Date: 20050328
  Serious: Yes (Death, Other)
  Sender: FDA-Public Use
  Company Number: 2004-10-0218

PATIENT
  Age: 53 Year
  Sex: Male

DRUGS (3)
  1. CELESTONE [Suspect]
     Indication: BRONCHITIS
     Dosage: 2MG X2 TABLET ORAL
     Route: 048
     Dates: start: 20040426, end: 20040426
  2. SPIRAMYCIN TABLETS [Concomitant]
  3. AMBROXOL HYDROCHLORIDE SYRUP [Concomitant]

REACTIONS (7)
  - ALVEOLITIS [None]
  - CARDIAC DISORDER [None]
  - DUODENAL ULCER [None]
  - GASTRIC HAEMORRHAGE [None]
  - GASTRIC ULCER PERFORATION [None]
  - LUNG DISORDER [None]
  - PULMONARY HAEMORRHAGE [None]
